FAERS Safety Report 7652594-0 (Version None)
Quarter: 2011Q3

REPORT INFORMATION
  Report Type: 
  Country: None (occurrence: None)
  Receive Date: 20110722
  Receipt Date: 20110429
  Transmission Date: 20111222
  Serious: Yes (Hospitalization)
  Sender: FDA-Public Use
  Company Number: UTC-006795

PATIENT
  Age: 45 Year
  Sex: Female
  Weight: 76.81 kg

DRUGS (4)
  1. REMODULIN [Suspect]
     Indication: PULMONARY HYPERTENSION
     Dosage: 17.28 UG/KG (0.012 UG/KG,1 IN 1 MIN),INTRAVENOUS
     Route: 042
     Dates: start: 20110421
  2. REMODULIN [Suspect]
     Indication: ATRIAL SEPTAL DEFECT
     Dosage: 17.28 UG/KG (0.012 UG/KG,1 IN 1 MIN),INTRAVENOUS
     Route: 042
     Dates: start: 20110421
  3. REVATIO [Concomitant]
  4. TRACLEER [Concomitant]

REACTIONS (4)
  - MYALGIA [None]
  - HEADACHE [None]
  - DIARRHOEA [None]
  - ARTHRALGIA [None]
